FAERS Safety Report 8011215-8 (Version None)
Quarter: 2011Q4

REPORT INFORMATION
  Report Type: 
  Country: None (occurrence: None)
  Receive Date: 20111228
  Receipt Date: 20111220
  Transmission Date: 20120403
  Serious: Yes (Other)
  Sender: FDA-Public Use
  Company Number: US-CELGENEUS-163-20785-11122523

PATIENT
  Sex: Male

DRUGS (3)
  1. THALOMID [Suspect]
     Indication: MULTIPLE MYELOMA
     Dosage: 150 MILLIGRAM
     Route: 048
     Dates: start: 20071201
  2. THALOMID [Suspect]
     Dosage: 200-250MG
     Route: 048
     Dates: start: 20080101
  3. THALOMID [Suspect]
     Dosage: 300 MILLIGRAM
     Route: 048
     Dates: start: 20080301

REACTIONS (2)
  - SEDATION [None]
  - DIABETIC NEUROPATHY [None]
